FAERS Safety Report 18631091 (Version 7)
Quarter: 2021Q2

REPORT INFORMATION
  Report Type: Report from Study
  Country: US (occurrence: US)
  Receive Date: 20201217
  Receipt Date: 20210525
  Transmission Date: 20210717
  Serious: Yes (Hospitalization)
  Sender: FDA-Public Use
  Company Number: US-SEATTLE GENETICS-2020SGN05517

PATIENT
  Age: 60 Year
  Sex: Female

DRUGS (3)
  1. LOMOTIL [Concomitant]
     Active Substance: ATROPINE SULFATE\DIPHENOXYLATE HYDROCHLORIDE
  2. POTASSIUM [Concomitant]
     Active Substance: POTASSIUM
  3. TUCATINIB [Suspect]
     Active Substance: TUCATINIB
     Indication: BREAST CANCER FEMALE
     Dosage: UNK

REACTIONS (13)
  - Intestinal obstruction [Unknown]
  - Diarrhoea [Unknown]
  - Gamma radiation therapy [Unknown]
  - Palmar-plantar erythrodysaesthesia syndrome [Unknown]
  - Product dose omission issue [Unknown]
  - Central nervous system mass [Unknown]
  - Fatigue [Recovering/Resolving]
  - Blood potassium decreased [Unknown]
  - Surgery [Unknown]
  - Sensitive skin [Unknown]
  - Skin warm [Unknown]
  - Anaemia [Not Recovered/Not Resolved]
  - Brain neoplasm [Unknown]

NARRATIVE: CASE EVENT DATE: 202012
